FAERS Safety Report 4722875-9 (Version None)
Quarter: 2005Q3

REPORT INFORMATION
  Report Type: 
  Country: None (occurrence: None)
  Receive Date: 20050722
  Receipt Date: 20050715
  Transmission Date: 20060218
  Serious: Yes (Hospitalization)
  Sender: FDA-Public Use
  Company Number: PHBS2005JP10227

PATIENT
  Age: 74 Year
  Sex: Male

DRUGS (11)
  1. TEGRETOL [Suspect]
     Indication: EPILEPSY
     Dosage: 200 MG, QD
     Route: 048
     Dates: start: 20050413, end: 20050506
  2. NORVASC [Concomitant]
     Dosage: 5 MG/DAY
     Route: 048
  3. THEO-DUR [Concomitant]
     Dosage: 400 MG/DAY
     Route: 048
  4. MUCODYNE [Concomitant]
     Dosage: 1500 MG/DAY
     Route: 048
  5. MEVALOTIN [Concomitant]
     Dosage: 10 MG/DAY
     Route: 048
  6. ZANTAC [Concomitant]
     Dosage: 2 DF/DAY
     Route: 048
  7. MUCOSTA [Concomitant]
     Dosage: 3 DF/DAY
     Route: 048
  8. GASMOTIN [Concomitant]
     Dosage: 3 DF/DAY
     Route: 048
  9. EPHEDRA TEAS [Concomitant]
     Dosage: 9.0 G/DAY
     Route: 048
  10. MAALOX [Concomitant]
     Dosage: 1.2 MG/DAY
     Route: 048
  11. INTEBAN [Concomitant]
     Dosage: 1 DF/DAY
     Route: 048

REACTIONS (11)
  - ALANINE AMINOTRANSFERASE INCREASED [None]
  - ASPARTATE AMINOTRANSFERASE INCREASED [None]
  - BLOOD ALKALINE PHOSPHATASE INCREASED [None]
  - BLOOD CREATINE PHOSPHOKINASE INCREASED [None]
  - GAMMA-GLUTAMYLTRANSFERASE INCREASED [None]
  - HYPERTHERMIA MALIGNANT [None]
  - LIVER FUNCTION TEST ABNORMAL [None]
  - MUSCULAR WEAKNESS [None]
  - MYOGLOBIN BLOOD INCREASED [None]
  - PYREXIA [None]
  - RHABDOMYOLYSIS [None]
